FAERS Safety Report 10366602 (Version 1)
Quarter: 2014Q3

REPORT INFORMATION
  Report Type: Spontaneous
  Country: RU (occurrence: None)
  Receive Date: 20140804
  Receipt Date: 20140804
  Transmission Date: 20150326
  Serious: Yes (Death)
  Sender: FDA-Public Use
  Company Number: FK201402988

PATIENT
  Age: 22 Year
  Sex: Female

DRUGS (9)
  1. ATROPIINE SULFATE [Concomitant]
  2. FENTANYL (FENTANYL) [Suspect]
     Active Substance: FENTANYL
     Indication: PRODUCT USED FOR UNKNOWN INDICATION
  3. DOMPERIDON [Suspect]
     Active Substance: DOMPERIDONE
     Indication: PRODUCT USED FOR UNKNOWN INDICATION
  4. CEFTRIAXONE. [Concomitant]
     Active Substance: CEFTRIAXONE
  5. DIPHENHYDRAMIN (DIPHENHYDRAMINE HYDROCHLORIDE) [Concomitant]
  6. SUXAMETHONIUM CHLORIDE [Concomitant]
     Active Substance: SUCCINYLCHOLINE CHLORIDE
  7. METRONIDAZOLE. [Concomitant]
     Active Substance: METRONIDAZOLE
  8. PIPECURONIUM BROMIDE. [Concomitant]
     Active Substance: PIPECURONIUM BROMIDE
  9. PROPOFOL 1% FRESENIUS (PROPOFOL) (PROPOFOL) [Suspect]
     Active Substance: PROPOFOL
     Indication: INDUCTION OF ANAESTHESIA
     Route: 042

REACTIONS (2)
  - Ventricular fibrillation [None]
  - Ventricular asystole [None]
